FAERS Safety Report 8011641-7 (Version None)
Quarter: 2011Q4

REPORT INFORMATION
  Report Type: 
  Country: None (occurrence: None)
  Receive Date: 20111228
  Receipt Date: 20111219
  Transmission Date: 20120403
  Serious: No
  Sender: FDA-Public Use
  Company Number: US-B.I. PHARMACEUTICALS,INC./RIDGEFIELD-2011-BP-28363BP

PATIENT
  Sex: Female

DRUGS (11)
  1. SPIRIVA [Suspect]
     Indication: CHRONIC OBSTRUCTIVE PULMONARY DISEASE
     Dosage: 18 MCG
     Route: 055
     Dates: start: 20081201
  2. ZYRTEC-D 12 HOUR [Concomitant]
     Indication: SEASONAL ALLERGY
     Dosage: 20 MG
     Route: 048
  3. WELLBUTRIN XL [Concomitant]
     Indication: DEPRESSION
     Dosage: 300 MG
     Route: 048
  4. PROBIOTIC [Concomitant]
     Route: 048
  5. NEURONTIN [Concomitant]
     Indication: PAIN
     Dosage: 300 MG
     Route: 048
  6. NEXIUM [Concomitant]
     Indication: DYSPEPSIA
     Dosage: 40 MG
     Route: 048
  7. MULTI-VITAMIN [Concomitant]
     Indication: SUPPLEMENTATION THERAPY
     Route: 048
  8. PREMARIN [Concomitant]
     Indication: BLOOD OESTROGEN ABNORMAL
     Dosage: 0.625 MG
     Route: 048
  9. MOBIC [Concomitant]
     Indication: ARTHRITIS
     Dosage: 10 MG
     Route: 048
  10. STOOL SOFTENER [Concomitant]
     Indication: CONSTIPATION
     Route: 048
  11. TRAMADOL HCL [Concomitant]
     Indication: PAIN
     Dosage: 40 MG
     Route: 048

REACTIONS (1)
  - CATARACT [None]
